FAERS Safety Report 11185279 (Version 1)
Quarter: 2015Q2

REPORT INFORMATION
  Report Type: Spontaneous
  Country: US (occurrence: US)
  Receive Date: 20150612
  Receipt Date: 20150612
  Transmission Date: 20150821
  Serious: No
  Sender: FDA-Public Use
  Company Number: US-SA-2015SA058391

PATIENT
  Age: 57 Year
  Sex: Female

DRUGS (4)
  1. TOUJEO [Suspect]
     Active Substance: INSULIN GLARGINE
     Indication: DIABETES MELLITUS
     Dosage: 28 UNITS IN THE MORNING FIRST AND THEN 32 UNITS AT NIGHT
     Route: 065
     Dates: start: 20150421
  2. TOUJEO [Suspect]
     Active Substance: INSULIN GLARGINE
     Indication: DIABETES MELLITUS
     Dosage: 32 IN THE MORNING AND 36 AT NIGHT
     Route: 065
  3. LANTUS [Concomitant]
     Active Substance: INSULIN GLARGINE
     Dosage: 78 UNITS IN THE MORNING AND 88 UNITS IN THE AFTERNOON
  4. SOLOSTAR U300 [Concomitant]
     Dates: start: 20150421

REACTIONS (3)
  - Drug ineffective [Unknown]
  - Anxiety [Unknown]
  - Blood glucose increased [Not Recovered/Not Resolved]
